FAERS Safety Report 8960425 (Version 1)
Quarter: 2012Q4

REPORT INFORMATION
  Report Type: 
  Country: US (occurrence: US)
  Receive Date: 20121211
  Receipt Date: 20121211
  Transmission Date: 20130627
  Serious: No
  Sender: FDA-Public Use
  Company Number: US-009507513-2012SP035956

PATIENT
  Sex: Female
  Weight: 58.5 kg

DRUGS (4)
  1. CLARITIN [Suspect]
     Indication: PRODUCT USED FOR UNKNOWN INDICATION
     Dosage: 10 mg, Unknown
     Route: 048
  2. VERAPAMIL [Concomitant]
     Indication: ATRIAL FIBRILLATION
  3. AMIODARONE [Concomitant]
     Indication: ATRIAL FIBRILLATION
  4. CRESTOR [Concomitant]
     Indication: BLOOD CHOLESTEROL

REACTIONS (4)
  - Heart rate increased [Recovered/Resolved]
  - Headache [Recovered/Resolved]
  - Sinus congestion [Recovered/Resolved]
  - Activities of daily living impaired [Recovered/Resolved]
